FAERS Safety Report 6855963-1 (Version None)
Quarter: 2010Q3

REPORT INFORMATION
  Report Type: 
  Country: None (occurrence: None)
  Receive Date: 20100716
  Receipt Date: 20100716
  Transmission Date: 20110219
  Serious: Yes (Hospitalization, Disabling)
  Sender: FDA-Public Use
  Company Number: None

PATIENT
  Age: 69 Year
  Sex: Female
  Weight: 48.5349 kg

DRUGS (1)
  1. LEVAQUIN [Suspect]
     Indication: URINARY TRACT INFECTION
     Dosage: FEBRUARY 2004 1 PILL ORAL
     Route: 048
     Dates: start: 20040201

REACTIONS (3)
  - DIARRHOEA [None]
  - RECTAL DISCHARGE [None]
  - THERAPEUTIC AGENT TOXICITY [None]
